FAERS Safety Report 23557354 (Version 1)
Quarter: 2024Q1

REPORT INFORMATION
  Report Type: Spontaneous
  Country: US (occurrence: None)
  Receive Date: 20240223
  Receipt Date: 20240223
  Transmission Date: 20240410
  Serious: Yes (Other)
  Sender: FDA-Public Use
  Company Number: US-Unichem Pharmaceuticals (USA) Inc-UCM202402-000171

PATIENT
  Age: 25 Year
  Sex: Male

DRUGS (4)
  1. METRONIDAZOLE [Suspect]
     Active Substance: METRONIDAZOLE
     Indication: Osteomyelitis
     Dosage: UNKNOWN
  2. CEFEPIME [Suspect]
     Active Substance: CEFEPIME HYDROCHLORIDE
     Indication: Osteomyelitis
     Dosage: UNKNOWN
  3. VANCOMYCIN [Suspect]
     Active Substance: VANCOMYCIN
     Indication: Osteomyelitis
     Dosage: UNKNOWN
     Route: 042
  4. VANCOMYCIN [Concomitant]
     Active Substance: VANCOMYCIN
     Indication: Osteomyelitis
     Dosage: UNKNOWN
     Route: 048

REACTIONS (1)
  - Clostridium difficile colitis [Unknown]
